FAERS Safety Report 9553339 (Version 2)
Quarter: 2013Q4

REPORT INFORMATION
  Report Type: Spontaneous
  Country: US (occurrence: None)
  Receive Date: 20130805
  Receipt Date: 20131018
  Transmission Date: 20140711
  Serious: Yes (Other)
  Sender: FDA-Public Use
  Company Number: AEGR000060

PATIENT
  Age: 47 Year
  Sex: Female
  Weight: 74.8 kg

DRUGS (9)
  1. JUXTAPID [Suspect]
     Indication: TYPE IIA HYPERLIPIDAEMIA
     Route: 048
     Dates: start: 20130515
  2. LIPITOR (ATORVASTATIN CALCIUM) [Concomitant]
  3. ZETIA (EZETIMIBE) [Concomitant]
  4. NIASPAN (NICOTINIC ACID) [Concomitant]
  5. ASA (ASA) [Concomitant]
  6. ZANTAC (RANITIDINE HYDROCHLORIDE) [Concomitant]
  7. ALEVE (NAPROXEN SODIUM) [Concomitant]
  8. CLARITIN (LORATADINE) [Concomitant]
  9. CALCIUM (CALCIUM GLUCONATE) [Concomitant]

REACTIONS (2)
  - Alanine aminotransferase increased [None]
  - Aspartate aminotransferase increased [None]
